FAERS Safety Report 7023210 (Version 2)
Quarter: 2014Q4

REPORT INFORMATION
  Report Type: Report from Study
  Country: FR (occurrence: FR)
  Receive Date: 20090615
  Receipt Date: 20141212
  Transmission Date: 20150529
  Serious: Yes (Life-Threatening)
  Sender: FDA-Public Use
  Company Number: FR-ASTRAZENECA-2009CG01200

PATIENT
  Age: 18968 Day
  Sex: Male
  Weight: 59 kg

DRUGS (5)
  1. RADIOTHERAPY [Suspect]
     Active Substance: RADIATION THERAPY
     Indication: SQUAMOUS CELL CARCINOMA OF HEAD AND NECK
     Route: 065
  2. CISPLATYL [Suspect]
     Active Substance: CISPLATIN
     Indication: SQUAMOUS CELL CARCINOMA OF HEAD AND NECK
     Route: 042
     Dates: start: 20090330, end: 20090513
  3. TRIATEC [Concomitant]
     Active Substance: RAMIPRIL
  4. IRESSA [Suspect]
     Active Substance: GEFITINIB
     Indication: SQUAMOUS CELL CARCINOMA OF HEAD AND NECK
     Route: 048
     Dates: start: 20090324, end: 20090504
  5. SELOKEN [Concomitant]
     Active Substance: METOPROLOL

REACTIONS (1)
  - Cerebrovascular accident [Recovered/Resolved with Sequelae]

NARRATIVE: CASE EVENT DATE: 20090518
